FAERS Safety Report 5347330-7 (Version None)
Quarter: 2007Q2

REPORT INFORMATION
  Report Type: 
  Country: None (occurrence: None)
  Receive Date: 20070514
  Receipt Date: 20060428
  Transmission Date: 20071010
  Serious: Yes (Other)
  Sender: FDA-Public Use
  Company Number: 2006-01713

PATIENT
  Sex: Female

DRUGS (5)
  1. ESTRADIOL [Suspect]
     Indication: HORMONE REPLACEMENT THERAPY
     Dosage: ORAL
  2. PREMPRO [Suspect]
     Indication: HORMONE REPLACEMENT THERAPY
  3. PREMARIN [Suspect]
     Indication: HORMONE REPLACEMENT THERAPY
  4. PROVERA [Suspect]
     Indication: HORMONE REPLACEMENT THERAPY
  5. MEDROXYPROGESTERONE [Suspect]
     Indication: HORMONE REPLACEMENT THERAPY

REACTIONS (1)
  - BREAST CANCER FEMALE [None]
